FAERS Safety Report 16106130 (Version 1)
Quarter: 2019Q1

REPORT INFORMATION
  Report Type: Spontaneous
  Country: US (occurrence: US)
  Receive Date: 20190322
  Receipt Date: 20190322
  Transmission Date: 20190418
  Serious: No
  Sender: FDA-Public Use
  Company Number: US-TEVA-2019-US-1025100

PATIENT
  Sex: Female

DRUGS (1)
  1. TAMOXIFEN CITRATE TABLET [Suspect]
     Active Substance: TAMOXIFEN CITRATE
     Indication: BREAST CANCER
     Route: 065
     Dates: start: 20190126

REACTIONS (7)
  - Dry mouth [Unknown]
  - Fatigue [Unknown]
  - Hypoacusis [Unknown]
  - Dyspepsia [Unknown]
  - Dysgeusia [Unknown]
  - Insomnia [Unknown]
  - Tinnitus [Unknown]

NARRATIVE: CASE EVENT DATE: 20190126
